FAERS Safety Report 8125114-4 (Version None)
Quarter: 2012Q1

REPORT INFORMATION
  Report Type: 
  Country: None (occurrence: None)
  Receive Date: 20120209
  Receipt Date: 20120120
  Transmission Date: 20120608
  Serious: Yes (Hospitalization)
  Sender: FDA-Public Use
  Company Number: TW-ROCHE-1029289

PATIENT
  Sex: Female

DRUGS (6)
  1. DOCETAXEL [Suspect]
     Indication: BREAST CANCER
     Dosage: EVERY CYCLE
     Route: 042
     Dates: start: 20100930
  2. HERCEPTIN [Suspect]
     Dates: start: 20101005, end: 20101005
  3. DOCETAXEL [Suspect]
     Route: 042
     Dates: start: 20100809, end: 20100809
  4. HERCEPTIN [Suspect]
     Indication: BREAST CANCER
     Dosage: GIVEN EVERY CYCLE
     Dates: start: 20100930
  5. HERCEPTIN [Suspect]
     Dates: start: 20100809, end: 20100809
  6. HERCEPTIN [Suspect]
     Dosage: RESTARTED THERAPY

REACTIONS (1)
  - BREAST CANCER METASTATIC [None]
